FAERS Safety Report 5836712-2 (Version None)
Quarter: 2008Q3

REPORT INFORMATION
  Report Type: 
  Country: None (occurrence: None)
  Receive Date: 20080805
  Receipt Date: 20080723
  Transmission Date: 20090109
  Serious: Yes (Death, Hospitalization)
  Sender: FDA-Public Use
  Company Number: 2008AL005325

PATIENT
  Age: 70 Year
  Sex: Male

DRUGS (3)
  1. DIGOXIN [Suspect]
     Indication: ATRIAL FIBRILLATION
     Dosage: 0.125 MG, QD, PO
     Route: 048
     Dates: start: 19990101, end: 20080401
  2. CYCLOSPORINE [Concomitant]
  3. PREDNISONE TAB [Concomitant]

REACTIONS (6)
  - CARDIAC FAILURE [None]
  - GASTROINTESTINAL HAEMORRHAGE [None]
  - LACERATION [None]
  - RENAL FAILURE CHRONIC [None]
  - SHOCK HAEMORRHAGIC [None]
  - WOUND INFECTION STAPHYLOCOCCAL [None]
